FAERS Safety Report 7581505-1 (Version None)
Quarter: 2011Q2

REPORT INFORMATION
  Report Type: 
  Country: None (occurrence: None)
  Receive Date: 20110629
  Receipt Date: 20110622
  Transmission Date: 20111010
  Serious: Yes (Other)
  Sender: FDA-Public Use
  Company Number: PHHY2011US55622

PATIENT
  Age: 59 Year
  Sex: Female

DRUGS (7)
  1. METFORMIN HCL [Concomitant]
  2. ULORIC [Concomitant]
  3. POTASSIUM [Concomitant]
  4. BENAZEPRIL HYDROCHLORIDE [Suspect]
  5. ZIAC [Suspect]
  6. SYNTHROID [Concomitant]
     Dosage: 200 UG, UNK
  7. TOPAMAX [Concomitant]

REACTIONS (5)
  - JOINT SWELLING [None]
  - EPISTAXIS [None]
  - SWELLING FACE [None]
  - OEDEMA MOUTH [None]
  - RHINORRHOEA [None]
